FAERS Safety Report 10735462 (Version 1)
Quarter: 2015Q1

REPORT INFORMATION
  Report Type: Spontaneous
  Country: US (occurrence: US)
  Receive Date: 20150126
  Receipt Date: 20150126
  Transmission Date: 20150721
  Serious: Yes (Death)
  Sender: FDA-Public Use
  Company Number: US-009507513-1501USA007599

PATIENT
  Age: 19 Year
  Sex: Male

DRUGS (5)
  1. ORGATRAX [Suspect]
     Active Substance: HYDROXYZINE HYDROCHLORIDE
     Route: 048
  2. CODEINE [Suspect]
     Active Substance: CODEINE
  3. DIPHENHYDRAMINE HYDROCHLORIDE. [Suspect]
     Active Substance: DIPHENHYDRAMINE HYDROCHLORIDE
  4. PAROXETINE [Suspect]
     Active Substance: PAROXETINE\PAROXETINE HYDROCHLORIDE
  5. DIACETYLMORPHINE [Suspect]
     Active Substance: DIACETYLMORPHINE

REACTIONS (2)
  - Toxicity to various agents [Fatal]
  - Drug abuse [Fatal]
